FAERS Safety Report 8270187-1 (Version None)
Quarter: 2012Q2

REPORT INFORMATION
  Report Type: 
  Country: None (occurrence: None)
  Receive Date: 20120405
  Receipt Date: 20120322
  Transmission Date: 20120825
  Serious: Yes (Other)
  Sender: FDA-Public Use
  Company Number: GER/UKI/12/0023650

PATIENT
  Age: 73 Year
  Sex: Female

DRUGS (3)
  1. NAPROXEN [Concomitant]
  2. OMEPRAZOLE [Suspect]
     Indication: GASTROINTESTINAL DISORDER
  3. OMEPRAZOLE [Suspect]
     Indication: PROPHYLAXIS

REACTIONS (1)
  - CUTANEOUS LUPUS ERYTHEMATOSUS [None]
